FAERS Safety Report 12818994 (Version 1)
Quarter: 2016Q4

REPORT INFORMATION
  Report Type: Spontaneous
  Country: US (occurrence: US)
  Receive Date: 20161006
  Receipt Date: 20161006
  Transmission Date: 20170207
  Serious: Yes (Disabling)
  Sender: FDA-Public Use
  Company Number: US-GLAXOSMITHKLINE-US2016145714

PATIENT
  Age: 27 Year
  Sex: Female

DRUGS (2)
  1. ADVAIR DISKUS [Suspect]
     Active Substance: FLUTICASONE PROPIONATE\SALMETEROL XINAFOATE
     Indication: ASTHMA
     Dosage: UNK
     Dates: start: 2009
  2. ADVAIR DISKUS [Suspect]
     Active Substance: FLUTICASONE PROPIONATE\SALMETEROL XINAFOATE
     Dosage: 1 PUFF(S), QD
     Route: 055
     Dates: end: 201609

REACTIONS (4)
  - Off label use [Unknown]
  - Teeth brittle [Recovering/Resolving]
  - Toothache [Recovered/Resolved]
  - Dental caries [Recovering/Resolving]

NARRATIVE: CASE EVENT DATE: 201609
